FAERS Safety Report 4437424-2 (Version None)
Quarter: 2004Q3

REPORT INFORMATION
  Report Type: 
  Country: None (occurrence: None)
  Receive Date: 20040830
  Receipt Date: 20040830
  Transmission Date: 20050211
  Serious: Yes (Hospitalization, Other)
  Sender: FDA-Public Use
  Company Number: None

PATIENT
  Age: 47 Year
  Sex: Male

DRUGS (3)
  1. TRAZODONE [Suspect]
  2. ALCOHOL [Suspect]
  3. COCAINE [Suspect]

REACTIONS (3)
  - ALCOHOL USE [None]
  - DRUG ABUSER [None]
  - INTENTIONAL OVERDOSE [None]
